FAERS Safety Report 7812033-3 (Version None)
Quarter: 2011Q4

REPORT INFORMATION
  Report Type: 
  Country: None (occurrence: None)
  Receive Date: 20111013
  Receipt Date: 20111006
  Transmission Date: 20120403
  Serious: Yes (Hospitalization)
  Sender: FDA-Public Use
  Company Number: NL-ROCHE-1002838

PATIENT
  Sex: Female
  Weight: 93 kg

DRUGS (3)
  1. OXYCONTIN [Concomitant]
     Route: 048
     Dates: start: 20110718
  2. RAMIPRIL [Concomitant]
     Route: 048
  3. XELODA [Suspect]
     Indication: BREAST CANCER METASTATIC
     Route: 048
     Dates: start: 20110727, end: 20110830

REACTIONS (2)
  - PULMONARY FIBROSIS [None]
  - PNEUMONITIS [None]
